FAERS Safety Report 5287065-2 (Version None)
Quarter: 2007Q2

REPORT INFORMATION
  Report Type: 
  Country: None (occurrence: None)
  Receive Date: 20070404
  Receipt Date: 20070323
  Transmission Date: 20071010
  Serious: Yes (Hospitalization)
  Sender: FDA-Public Use
  Company Number: FR-PFIZER INC-2005168037

PATIENT
  Age: 58 Year
  Sex: Male

DRUGS (5)
  1. CEFPODOXIME PROXETIL [Suspect]
     Indication: ILL-DEFINED DISORDER
     Route: 048
     Dates: start: 20051003, end: 20051005
  2. SOLUPRED [Suspect]
     Indication: ILL-DEFINED DISORDER
     Route: 048
     Dates: start: 20051003, end: 20051005
  3. PIVALONE [Suspect]
     Indication: ILL-DEFINED DISORDER
     Route: 055
     Dates: start: 20051003, end: 20051005
  4. SUDAFED 12 HOUR [Suspect]
     Indication: ILL-DEFINED DISORDER
     Route: 048
     Dates: start: 20051003, end: 20051005
  5. NEXEN [Suspect]
     Indication: ILL-DEFINED DISORDER
     Route: 048

REACTIONS (4)
  - CUTANEOUS VASCULITIS [None]
  - LEUKOCYTOCLASTIC VASCULITIS [None]
  - OEDEMA PERIPHERAL [None]
  - VASCULAR PURPURA [None]
